FAERS Safety Report 7052416-5 (Version None)
Quarter: 2010Q4

REPORT INFORMATION
  Report Type: 
  Country: None (occurrence: None)
  Receive Date: 20101019
  Receipt Date: 20101004
  Transmission Date: 20110411
  Serious: No
  Sender: FDA-Public Use
  Company Number: US-BIOGENIDEC-2010BI034100

PATIENT
  Age: 14 Year
  Sex: Female

DRUGS (1)
  1. AVONEX [Suspect]
     Indication: MULTIPLE SCLEROSIS
     Route: 030
     Dates: start: 20091101

REACTIONS (6)
  - ARTHRALGIA [None]
  - BACK PAIN [None]
  - INFLUENZA LIKE ILLNESS [None]
  - MOBILITY DECREASED [None]
  - MULTIPLE SCLEROSIS [None]
  - VISION BLURRED [None]
